FAERS Safety Report 18445479 (Version 1)
Quarter: 2020Q4

REPORT INFORMATION
  Report Type: Spontaneous
  Country: ES (occurrence: ES)
  Receive Date: 20201030
  Receipt Date: 20201030
  Transmission Date: 20210114
  Serious: Yes (Other)
  Sender: FDA-Public Use
  Company Number: ES-UCBSA-2020043620

PATIENT
  Age: 90 Year
  Sex: Male

DRUGS (1)
  1. LEVETIRACETAM. [Suspect]
     Active Substance: LEVETIRACETAM
     Indication: SEIZURE
     Dosage: 1000 MILLIGRAM
     Route: 042

REACTIONS (4)
  - Anxiety [Recovering/Resolving]
  - Dementia [Recovering/Resolving]
  - Restlessness [Recovering/Resolving]
  - Cognitive disorder [Not Recovered/Not Resolved]
